FAERS Safety Report 9854985 (Version 1)
Quarter: 2013Q4

REPORT INFORMATION
  Report Type: Spontaneous
  Country: US (occurrence: None)
  Receive Date: 20131226
  Receipt Date: 20131226
  Transmission Date: 20140711
  Serious: Yes (Other)
  Sender: FDA-Public Use
  Company Number: PHEH2013US014723

PATIENT
  Age: 76 Year
  Sex: Female

DRUGS (2)
  1. AFINITOR (RAD) UNKNOWN [Suspect]
  2. ANTIHYPERTENSIVES [Suspect]

REACTIONS (2)
  - Diarrhoea [None]
  - Drug interaction [None]
